FAERS Safety Report 8815987 (Version 1)
Quarter: 2012Q4

REPORT INFORMATION
  Report Type: 
  Country: US (occurrence: US)
  Receive Date: 20120928
  Receipt Date: 20120928
  Transmission Date: 20130627
  Serious: No
  Sender: FDA-Public Use
  Company Number: US-VIIV HEALTHCARE LIMITED-A0957710A

PATIENT
  Age: 40 Year
  Sex: Male

DRUGS (5)
  1. EPZICOM [Suspect]
     Indication: HIV INFECTION
     Dosage: 600MG Per day
     Route: 048
     Dates: start: 200810
  2. NORVIR [Concomitant]
  3. REYATAZ [Concomitant]
  4. MULTIVITAMINS [Concomitant]
  5. PRAVASTATIN [Concomitant]

REACTIONS (6)
  - Weight increased [Not Recovered/Not Resolved]
  - Increased appetite [Unknown]
  - Fatigue [Unknown]
  - Fatigue [Unknown]
  - Nausea [Unknown]
  - Headache [Unknown]
